FAERS Safety Report 9406048 (Version 5)
Quarter: 2015Q4

REPORT INFORMATION
  Report Type: Spontaneous
  Country: AU (occurrence: AU)
  Receive Date: 20130717
  Receipt Date: 20151221
  Transmission Date: 20160305
  Serious: Yes (Other)
  Sender: FDA-Public Use
  Company Number: AU-009507513-1307AUS005144

PATIENT
  Age: 18 Year
  Sex: Female

DRUGS (6)
  1. DESLORATADINE. [Suspect]
     Active Substance: DESLORATADINE
     Indication: SUICIDE ATTEMPT
     Dosage: 335 MG, UNKNOWN
     Route: 048
     Dates: start: 20130510
  2. IBUPROFEN. [Suspect]
     Active Substance: IBUPROFEN
     Dosage: 6000 MG, UNK
  3. IBUPROFEN. [Suspect]
     Active Substance: IBUPROFEN
     Dosage: 6000 MG, UNK
  4. DESLORATADINE. [Suspect]
     Active Substance: DESLORATADINE
     Dosage: 335 MG, UNK
  5. DESLORATADINE. [Suspect]
     Active Substance: DESLORATADINE
     Dosage: 335 MG, UNK
  6. IBUPROFEN. [Suspect]
     Active Substance: IBUPROFEN
     Indication: SUICIDE ATTEMPT
     Dosage: 6000 MILLIGRAM, ONCE, 30  DF X 200 MG
     Route: 048
     Dates: start: 20130510

REACTIONS (2)
  - Electrocardiogram QT prolonged [Recovered/Resolved]
  - Intentional overdose [Recovered/Resolved]

NARRATIVE: CASE EVENT DATE: 20130510
